FAERS Safety Report 13474593 (Version 1)
Quarter: 2017Q2

REPORT INFORMATION
  Report Type: Spontaneous
  Country: CN (occurrence: CN)
  Receive Date: 20170424
  Receipt Date: 20170424
  Transmission Date: 20170830
  Serious: Yes (Other)
  Sender: FDA-Public Use
  Company Number: CN-GUERBET-CN-20170012

PATIENT

DRUGS (2)
  1. LIPIODOL [Suspect]
     Active Substance: ETHIODIZED OIL
     Indication: SCLEROTHERAPY
     Route: 065
  2. HISTOACRYL [Suspect]
     Active Substance: ENBUCRILATE
     Indication: SCLEROTHERAPY
     Dosage: 0.5 TO 2 ML
     Route: 065

REACTIONS (4)
  - Oesophageal stenosis [Unknown]
  - Obstruction gastric [Unknown]
  - Dysphagia [Recovering/Resolving]
  - Off label use [Unknown]
